FAERS Safety Report 24860326 (Version 2)
Quarter: 2025Q1

REPORT INFORMATION
  Report Type: Report from Study
  Country: US (occurrence: US)
  Receive Date: 20250120
  Receipt Date: 20250129
  Transmission Date: 20250409
  Serious: Yes (Other)
  Sender: ALEXION PHARMACEUTICALS
  Company Number: US-AstraZeneca-CH-00786205A

PATIENT
  Age: 77 Year

DRUGS (1)
  1. DAPAGLIFLOZIN [Suspect]
     Active Substance: DAPAGLIFLOZIN
     Dosage: 5 MILLIGRAM, QD

REACTIONS (6)
  - Myocardial infarction [Unknown]
  - Carotid artery stenosis [Unknown]
  - Angina pectoris [Unknown]
  - Cardiovascular disorder [Unknown]
  - Arteriosclerosis [Unknown]
  - Intermittent claudication [Unknown]
